FAERS Safety Report 17952927 (Version 7)
Quarter: 2022Q1

REPORT INFORMATION
  Report Type: Spontaneous
  Country: BE (occurrence: BE)
  Receive Date: 20200627
  Receipt Date: 20220316
  Transmission Date: 20220423
  Serious: Yes (Life-Threatening, Hospitalization, Other)
  Sender: FDA-Public Use
  Company Number: BE-ACCORD-186970

PATIENT
  Age: 67 Year
  Sex: Male

DRUGS (12)
  1. CLOPIDOGREL [Interacting]
     Active Substance: CLOPIDOGREL BISULFATE
     Indication: Product used for unknown indication
     Route: 065
  2. REPAGLINIDE [Interacting]
     Active Substance: REPAGLINIDE
     Indication: Type 2 diabetes mellitus
     Dosage: 1 MILLIGRAM, BID,INTRODUCED SEVERAL MONTHS AGO
     Route: 065
  3. SIMVASTATIN [Interacting]
     Active Substance: SIMVASTATIN
     Indication: Product used for unknown indication
     Route: 048
  4. EPLERENONE [Interacting]
     Active Substance: EPLERENONE
     Indication: Product used for unknown indication
     Route: 065
  5. APIXABAN [Interacting]
     Active Substance: APIXABAN
     Indication: Product used for unknown indication
     Route: 065
  6. LERCANIDIPINE [Interacting]
     Active Substance: LERCANIDIPINE
     Indication: Hypertension
     Route: 065
  7. COLCHICINE [Interacting]
     Active Substance: COLCHICINE
     Indication: Gout
     Dosage: 1 MILLIGRAM, QD.HAD STARTED RECEIVING OVER THE LAST MONTH
     Route: 065
  8. PANTOPRAZOLE [Concomitant]
     Active Substance: PANTOPRAZOLE
     Route: 065
  9. LOSARTAN [Concomitant]
     Active Substance: LOSARTAN
     Route: 048
  10. MOXONIDINE [Concomitant]
     Active Substance: MOXONIDINE
     Route: 065
  11. METFORMIN [Concomitant]
     Active Substance: METFORMIN HYDROCHLORIDE
     Indication: Type 2 diabetes mellitus
     Route: 065
  12. ALLOPURINOL [Concomitant]
     Active Substance: ALLOPURINOL
     Route: 065

REACTIONS (4)
  - Drug interaction [Unknown]
  - Altered state of consciousness [Recovered/Resolved]
  - Drug half-life increased [Recovering/Resolving]
  - Hypoglycaemia [Recovered/Resolved]
